FAERS Safety Report 12952855 (Version 1)
Quarter: 2016Q4

REPORT INFORMATION
  Report Type: Report from Study
  Country: US (occurrence: US)
  Receive Date: 20161117
  Receipt Date: 20161117
  Transmission Date: 20170207
  Serious: Yes (Other)
  Sender: FDA-Public Use
  Company Number: US-PFIZER INC-2016528847

PATIENT
  Age: 35 Year
  Sex: Female

DRUGS (1)
  1. PENTAZOCINE LACTATE [Suspect]
     Active Substance: PENTAZOCINE LACTATE
     Dosage: 120 MG PER 24 HR

REACTIONS (4)
  - Skin fibrosis [Unknown]
  - Drug abuse [Unknown]
  - Scleroderma [Unknown]
  - Skin ulcer [Unknown]
